FAERS Safety Report 14735520 (Version 2)
Quarter: 2018Q3

REPORT INFORMATION
  Report Type: Spontaneous
  Country: JP (occurrence: JP)
  Receive Date: 20180409
  Receipt Date: 20180828
  Transmission Date: 20181010
  Serious: Yes (Death)
  Sender: FDA-Public Use
  Company Number: PHJP2017JP032770

PATIENT
  Sex: Male

DRUGS (2)
  1. REGITIN INJECTION 10MG [Suspect]
     Active Substance: PHENTOLAMINE
     Indication: BLOOD PRESSURE INCREASED
  2. REGITIN INJECTION 10MG [Suspect]
     Active Substance: PHENTOLAMINE
     Indication: PHAEOCHROMOCYTOMA
     Dosage: 1600 MG, QD
     Route: 042

REACTIONS (4)
  - Malignant neoplasm progression [Fatal]
  - Phaeochromocytoma malignant [Fatal]
  - Overdose [Unknown]
  - Metastasis [Fatal]
